FAERS Safety Report 8017503-3 (Version None)
Quarter: 2011Q4

REPORT INFORMATION
  Report Type: 
  Country: None (occurrence: None)
  Receive Date: 20111228
  Receipt Date: 20111228
  Transmission Date: 20120403
  Serious: Yes (Other)
  Sender: FDA-Public Use
  Company Number: None

PATIENT
  Age: 71 Year
  Sex: Female
  Weight: 90.7194 kg

DRUGS (1)
  1. KETOCONAZOLE [Suspect]
     Indication: FUNGAL INFECTION
     Dosage: 60 G 2% CREAM DAILY
     Dates: start: 20101109

REACTIONS (2)
  - BURNS THIRD DEGREE [None]
  - PYREXIA [None]
